FAERS Safety Report 15632869 (Version 1)
Quarter: 2018Q4

REPORT INFORMATION
  Report Type: Spontaneous
  Country: US (occurrence: US)
  Receive Date: 20181113
  Receipt Date: 20181113
  Transmission Date: 20190205
  Serious: Yes (Disabling)
  Sender: FDA-Public Use
  Company Number: None

PATIENT
  Age: 24 Year
  Sex: Female
  Weight: 45 kg

DRUGS (8)
  1. ELLURA PROBIOTIC [Concomitant]
  2. VENTOLIN [Concomitant]
     Active Substance: ALBUTEROL SULFATE
  3. METHENAMINE HIPPURATE. [Suspect]
     Active Substance: METHENAMINE HIPPURATE
     Indication: PROPHYLAXIS
     Dosage: ?          QUANTITY:1 TABLET(S);?
     Route: 048
     Dates: start: 20181030
  4. AMPHETAMINE SALTS XR [Concomitant]
  5. VITAMIN C [Concomitant]
     Active Substance: ASCORBIC ACID
  6. METHENAMINE HIPPURATE. [Suspect]
     Active Substance: METHENAMINE HIPPURATE
     Indication: URINARY TRACT INFECTION
     Dosage: ?          QUANTITY:1 TABLET(S);?
     Route: 048
     Dates: start: 20181030
  7. DEPO-PROVERA [Concomitant]
     Active Substance: MEDROXYPROGESTERONE ACETATE
  8. CELECOXIB. [Concomitant]
     Active Substance: CELECOXIB

REACTIONS (8)
  - Rash [None]
  - Dizziness [None]
  - Swelling face [None]
  - Swollen tongue [None]
  - Eye pruritus [None]
  - Rash vesicular [None]
  - Dyspnoea [None]
  - Lacrimation increased [None]

NARRATIVE: CASE EVENT DATE: 20181101
